FAERS Safety Report 16001248 (Version 3)
Quarter: 2019Q2

REPORT INFORMATION
  Report Type: Report from Study
  Country: US (occurrence: US)
  Receive Date: 20190225
  Receipt Date: 20190411
  Transmission Date: 20190711
  Serious: Yes (Hospitalization)
  Sender: FDA-Public Use
  Company Number: PHEH2019US007897

PATIENT
  Sex: Female
  Weight: 47.63 kg

DRUGS (1)
  1. COSENTYX [Suspect]
     Active Substance: SECUKINUMAB
     Indication: PSORIASIS
     Dosage: 300 MG, Q4W (AT DAY 28 (DOSE 5) AND THEN EVERY 4 WEEKS AS DIRECTED)
     Route: 058
     Dates: start: 201901

REACTIONS (4)
  - Bronchitis [Recovering/Resolving]
  - Nasopharyngitis [Unknown]
  - Chronic obstructive pulmonary disease [Unknown]
  - Dyspnoea [Recovering/Resolving]
